FAERS Safety Report 7036997-3 (Version None)
Quarter: 2010Q4

REPORT INFORMATION
  Report Type: 
  Country: None (occurrence: None)
  Receive Date: 20101011
  Receipt Date: 20100927
  Transmission Date: 20110411
  Serious: Yes (Hospitalization, Other)
  Sender: FDA-Public Use
  Company Number: GB-RANBAXY-2010R1-38582

PATIENT

DRUGS (8)
  1. LAMOTRIGINE [Suspect]
     Indication: EPILEPSY
     Dosage: 200 MG, BID
     Route: 048
  2. TOPIRAMATE [Suspect]
     Indication: PRODUCT USED FOR UNKNOWN INDICATION
     Dosage: UNK
     Route: 065
  3. TOPAMAX [Suspect]
     Indication: PETIT MAL EPILEPSY
     Dosage: 25 MG, BID
     Route: 048
     Dates: start: 20070401
  4. TOPAMAX [Suspect]
     Dosage: 50 MG, BID
     Route: 048
     Dates: start: 20100601
  5. TOPAMAX [Suspect]
     Dosage: 75 MG, BID
     Route: 048
     Dates: start: 20100601
  6. TOPAMAX [Suspect]
     Dosage: 125 MG, 1 DAYS (75 MG IN MORNING AND 50 MG IN EVENING)
     Route: 048
     Dates: start: 20100709
  7. TOPAMAX [Suspect]
     Dosage: 50 MG, BID
     Route: 048
  8. TOPAMAX [Suspect]
     Dosage: 75 MG, (50 MG MORNING AND 25 MG EVENING)
     Route: 048

REACTIONS (7)
  - ABASIA [None]
  - BALANCE DISORDER [None]
  - CONVULSION [None]
  - DIZZINESS [None]
  - DYSARTHRIA [None]
  - HEADACHE [None]
  - VISION BLURRED [None]
